FAERS Safety Report 7904658-1 (Version None)
Quarter: 2011Q4

REPORT INFORMATION
  Report Type: 
  Country: None (occurrence: None)
  Receive Date: 20111109
  Receipt Date: 20111103
  Transmission Date: 20120403
  Serious: Yes (Other)
  Sender: FDA-Public Use
  Company Number: US-GLAXOSMITHKLINE-A0951392A

PATIENT
  Sex: Female

DRUGS (1)
  1. VENTOLIN HFA [Suspect]
     Indication: PRODUCT USED FOR UNKNOWN INDICATION
     Route: 055

REACTIONS (10)
  - HYPOXIA [None]
  - BACK PAIN [None]
  - FATIGUE [None]
  - DYSPNOEA [None]
  - BUNDLE BRANCH BLOCK RIGHT [None]
  - GAIT DISTURBANCE [None]
  - MUSCLE SPASMS [None]
  - CHEST PAIN [None]
  - HYPOAESTHESIA [None]
  - MIGRAINE [None]
